FAERS Safety Report 6653327-7 (Version None)
Quarter: 2010Q1

REPORT INFORMATION
  Report Type: 
  Country: None (occurrence: None)
  Receive Date: 20100326
  Receipt Date: 20100316
  Transmission Date: 20100710
  Serious: Yes (Death, Disabling, Other)
  Sender: FDA-Public Use
  Company Number: JP-ABBOTT-10P-087-0634539-00

PATIENT
  Age: 79 Year
  Sex: Male

DRUGS (4)
  1. LEUPROLIDE ACETATE [Suspect]
     Indication: PROSTATE CANCER STAGE IV
     Route: 058
     Dates: start: 20071211, end: 20080530
  2. ESTRAMUSTINE PHOSPHATE SODIUM [Concomitant]
     Indication: PROSTATE CANCER STAGE IV
     Route: 048
     Dates: start: 20080501, end: 20080529
  3. ETHINYL ESTRADIOL [Concomitant]
     Indication: PROSTATE CANCER STAGE IV
     Route: 048
     Dates: end: 20080430
  4. ETHINYL ESTRADIOL [Concomitant]
     Route: 048
     Dates: start: 20080530, end: 20080616

REACTIONS (2)
  - CEREBRAL INFARCTION [None]
  - PROSTATE CANCER STAGE IV [None]
